FAERS Safety Report 16350006 (Version 1)
Quarter: 2019Q2

REPORT INFORMATION
  Report Type: Report from Study
  Country: JP (occurrence: JP)
  Receive Date: 20190523
  Receipt Date: 20190523
  Transmission Date: 20190711
  Serious: Yes (Other)
  Sender: FDA-Public Use
  Company Number: JP-AMGEN-JPNCT2014087818

PATIENT
  Age: 65 Year
  Sex: Male

DRUGS (75)
  1. ROMIPLOSTIM [Suspect]
     Active Substance: ROMIPLOSTIM
     Indication: IMMUNE THROMBOCYTOPENIC PURPURA
     Dosage: 1 MICROGRAM/KILOGRAM
     Route: 065
     Dates: start: 20120420, end: 20120420
  2. ROMIPLOSTIM [Suspect]
     Active Substance: ROMIPLOSTIM
     Dosage: 4 MICROGRAM/KILOGRAM, QWK
     Route: 065
     Dates: start: 20120511, end: 20120518
  3. ROMIPLOSTIM [Suspect]
     Active Substance: ROMIPLOSTIM
     Dosage: 9 MICROGRAM/KILOGRAM
     Route: 065
     Dates: start: 20130329, end: 20130329
  4. DECADRON [Concomitant]
     Active Substance: DEXAMETHASONE
     Dosage: 16.5 MILLIGRAM
     Route: 065
     Dates: start: 20120505, end: 20120508
  5. DECADRON [Concomitant]
     Active Substance: DEXAMETHASONE
     Dosage: 16.5 MG
     Route: 065
     Dates: start: 20120528, end: 20120528
  6. DECADRON [Concomitant]
     Active Substance: DEXAMETHASONE
     Dosage: 0.99 MG
     Route: 065
     Dates: start: 20120726, end: 20120731
  7. ATELEC [Concomitant]
     Active Substance: CILNIDIPINE
     Indication: HYPERTENSION
     Dosage: UNK
     Route: 048
  8. ISODINE [Concomitant]
     Active Substance: POVIDONE-IODINE
     Indication: PROPHYLAXIS
     Dosage: UNK
     Route: 049
  9. PL [Concomitant]
     Active Substance: ACETAMINOPHEN\CAFFEINE\PROMETHAZINE\SALICYLAMIDE
     Indication: PRODUCT USED FOR UNKNOWN INDICATION
     Dosage: UNK
     Route: 048
  10. RINDERON A [Concomitant]
     Active Substance: BETAMETHASONE SODIUM PHOSPHATE\NEOMYCIN SULFATE
     Indication: OCULAR SARCOIDOSIS
     Dosage: UNK
     Route: 047
  11. CALONAL [Concomitant]
     Active Substance: ACETAMINOPHEN
     Indication: PRODUCT USED FOR UNKNOWN INDICATION
     Dosage: UNK
     Route: 048
  12. RABEPRAZOLE NA [Concomitant]
     Active Substance: RABEPRAZOLE SODIUM
     Indication: PROPHYLAXIS
     Dosage: UNK
     Route: 048
  13. ROMIPLOSTIM [Suspect]
     Active Substance: ROMIPLOSTIM
     Dosage: 10 MICROGRAM/KILOGRAM, QWK
     Route: 065
     Dates: start: 20130405, end: 20130412
  14. ROMIPLOSTIM [Suspect]
     Active Substance: ROMIPLOSTIM
     Dosage: 10 MICROGRAM/KILOGRAM, QWK
     Route: 065
     Dates: start: 20130621, end: 20130705
  15. ALLELOCK [Concomitant]
     Active Substance: OLOPATADINE HYDROCHLORIDE
     Indication: PRODUCT USED FOR UNKNOWN INDICATION
     Dosage: UNK
     Route: 048
  16. DECADRON [Concomitant]
     Active Substance: DEXAMETHASONE
     Indication: IMMUNE THROMBOCYTOPENIC PURPURA
     Dosage: 16.5 MILLIGRAM
     Route: 065
     Dates: start: 20120421, end: 20120424
  17. DECADRON [Concomitant]
     Active Substance: DEXAMETHASONE
     Dosage: 13.2 MG
     Route: 065
     Dates: start: 20120612, end: 20120612
  18. BAKTAR [Concomitant]
     Active Substance: SULFAMETHOXAZOLE\TRIMETHOPRIM
     Indication: PROPHYLAXIS
     Dosage: UNK
     Route: 048
  19. MYSLEE [Concomitant]
     Active Substance: ZOLPIDEM TARTRATE
     Indication: INSOMNIA
     Dosage: UNK
     Route: 048
  20. KENACORT-A [Concomitant]
     Active Substance: TRIAMCINOLONE
     Indication: OCULAR SARCOIDOSIS
     Dosage: UNK
     Route: 031
  21. ADONA [Concomitant]
     Indication: PRODUCT USED FOR UNKNOWN INDICATION
     Dosage: UNK
     Route: 042
  22. FUROSEMIDE. [Concomitant]
     Active Substance: FUROSEMIDE
     Indication: PRODUCT USED FOR UNKNOWN INDICATION
     Dosage: UNK
     Route: 065
  23. REZALTAS [Concomitant]
     Active Substance: AZELNIDIPINE\OLMESARTAN MEDOXOMIL
     Indication: HYPERTENSION
     Dosage: UNK
     Route: 048
  24. TARIVID [Concomitant]
     Active Substance: OFLOXACIN
     Indication: OCULAR SARCOIDOSIS
     Dosage: UNK
     Route: 047
  25. MUCOSTA [Concomitant]
     Active Substance: REBAMIPIDE
     Indication: PROPHYLAXIS
     Dosage: UNK
     Route: 048
  26. ROMIPLOSTIM [Suspect]
     Active Substance: ROMIPLOSTIM
     Dosage: 3 MICROGRAM/KILOGRAM
     Route: 065
     Dates: start: 20120504, end: 20120504
  27. ROMIPLOSTIM [Suspect]
     Active Substance: ROMIPLOSTIM
     Dosage: 8 MICROGRAM/KILOGRAM
     Route: 065
     Dates: start: 20131101, end: 20131101
  28. TS-1 [Suspect]
     Active Substance: GIMERACIL\OTERACIL\TEGAFUR
     Indication: CHOLANGIOCARCINOMA
     Dosage: UNK
     Route: 048
  29. DECADRON [Concomitant]
     Active Substance: DEXAMETHASONE
     Dosage: 16.5 MG
     Route: 065
     Dates: start: 20120517, end: 20120520
  30. DECADRON [Concomitant]
     Active Substance: DEXAMETHASONE
     Dosage: 13.2 MG
     Route: 065
     Dates: start: 20120607, end: 20120609
  31. RESTAMIN [Concomitant]
     Active Substance: DIPHENHYDRAMINE
     Indication: PRODUCT USED FOR UNKNOWN INDICATION
     Dosage: UNK
     Route: 048
  32. CEFEPIME DIHYDROCHLORIDE [Concomitant]
     Active Substance: CEFEPIME HYDROCHLORIDE
     Indication: PRODUCT USED FOR UNKNOWN INDICATION
     Dosage: UNK
     Route: 042
  33. ROMIPLOSTIM [Suspect]
     Active Substance: ROMIPLOSTIM
     Dosage: 6 MICROGRAM/KILOGRAM
     Route: 065
     Dates: start: 20120525, end: 20120525
  34. ROMIPLOSTIM [Suspect]
     Active Substance: ROMIPLOSTIM
     Dosage: 10 MICROGRAM/KILOGRAM, QWK
     Route: 065
     Dates: start: 20130426, end: 20130509
  35. ROMIPLOSTIM [Suspect]
     Active Substance: ROMIPLOSTIM
     Dosage: 10 MICROGRAM/KILOGRAM, QWK
     Route: 065
     Dates: start: 20140314
  36. PREDONINE [Concomitant]
     Active Substance: PREDNISOLONE
     Indication: IMMUNE THROMBOCYTOPENIC PURPURA
     Dosage: 40 MILLIGRAM
     Route: 048
     Dates: start: 20120326, end: 20120419
  37. DECADRON [Concomitant]
     Active Substance: DEXAMETHASONE
     Dosage: 3.3 MG
     Route: 065
     Dates: start: 20120627, end: 20120702
  38. HUSCODE [Concomitant]
     Active Substance: CHLORPHENIRAMINE MALEATE\DIHYDROCODEINE PHOSPHATE\METHYLEPHEDRINE HYDROCHLORIDE, DL-
     Indication: PRODUCT USED FOR UNKNOWN INDICATION
     Dosage: UNK
     Route: 048
  39. ROMIPLOSTIM [Suspect]
     Active Substance: ROMIPLOSTIM
     Dosage: 2 MICROGRAM/KILOGRAM
     Route: 065
     Dates: start: 20120427, end: 20120427
  40. ROMIPLOSTIM [Suspect]
     Active Substance: ROMIPLOSTIM
     Dosage: 9 MICROGRAM/KILOGRAM, QWK
     Route: 065
     Dates: start: 20131108, end: 20131122
  41. DECADRON [Concomitant]
     Active Substance: DEXAMETHASONE
     Dosage: 16.5 MG
     Route: 065
     Dates: start: 20120524, end: 20120526
  42. DECADRON [Concomitant]
     Active Substance: DEXAMETHASONE
     Dosage: 16.5 MG
     Route: 065
     Dates: start: 20120531, end: 20120603
  43. DECADRON [Concomitant]
     Active Substance: DEXAMETHASONE
     Dosage: 1.65 MG
     Route: 065
     Dates: start: 20120709, end: 20120725
  44. REVOLADE [Concomitant]
     Active Substance: ELTROMBOPAG
     Indication: IMMUNE THROMBOCYTOPENIC PURPURA
     Dosage: 12.5 MILLIGRAM
     Route: 048
     Dates: start: 20120411, end: 20120419
  45. PARIET [Concomitant]
     Active Substance: RABEPRAZOLE SODIUM
     Indication: PROPHYLAXIS
     Dosage: UNK
     Route: 048
  46. PREMINENT [Concomitant]
     Active Substance: HYDROCHLOROTHIAZIDE\LOSARTAN POTASSIUM
     Indication: HYPERTENSION
     Dosage: UNK
     Route: 048
  47. VFEND [Concomitant]
     Active Substance: VORICONAZOLE
     Indication: PROPHYLAXIS
     Dosage: UNK
     Route: 048
  48. GEMCITABINE [Concomitant]
     Active Substance: GEMCITABINE\GEMCITABINE HYDROCHLORIDE
     Indication: CHOLANGIOCARCINOMA
     Dosage: UNK
     Route: 041
  49. IMIPENEM AND CILASTATIN [Concomitant]
     Active Substance: CILASTATIN SODIUM\IMIPENEM
     Indication: PRODUCT USED FOR UNKNOWN INDICATION
     Dosage: UNK
     Route: 041
  50. KYTRIL [Concomitant]
     Active Substance: GRANISETRON HYDROCHLORIDE
     Indication: PROPHYLAXIS
     Dosage: UNK
     Route: 041
  51. GEMZAR [Concomitant]
     Active Substance: GEMCITABINE HYDROCHLORIDE
     Indication: CHOLANGIOCARCINOMA
     Dosage: UNK
     Route: 065
  52. OLMETEC [Concomitant]
     Active Substance: OLMESARTAN MEDOXOMIL
     Indication: HYPERTENSION
     Dosage: UNK
     Route: 048
  53. INAVIR [Concomitant]
     Indication: PRODUCT USED FOR UNKNOWN INDICATION
     Dosage: UNK
  54. BISOPROLOL FUMARATE. [Concomitant]
     Active Substance: BISOPROLOL FUMARATE
     Indication: ANGINA PECTORIS
     Dosage: UNK
     Route: 048
  55. ROMIPLOSTIM [Suspect]
     Active Substance: ROMIPLOSTIM
     Dosage: 10 MICROGRAM/KILOGRAM, QWK
     Route: 065
     Dates: start: 20130524, end: 20130607
  56. ROMIPLOSTIM [Suspect]
     Active Substance: ROMIPLOSTIM
     Dosage: 9 MICROGRAM/KILOGRAM, QWK
     Route: 065
     Dates: start: 20130816, end: 20130830
  57. ROMIPLOSTIM [Suspect]
     Active Substance: ROMIPLOSTIM
     Dosage: 8 MICROGRAM/KILOGRAM, QWK
     Route: 065
     Dates: start: 20140130, end: 20140227
  58. DECADRON [Concomitant]
     Active Substance: DEXAMETHASONE
     Dosage: 6.6 MG
     Route: 065
     Dates: start: 20120624, end: 20120626
  59. DECADRON [Concomitant]
     Active Substance: DEXAMETHASONE
     Dosage: 1.65 MG
     Route: 065
     Dates: start: 20120703, end: 20120706
  60. APHTASOLON [Concomitant]
     Indication: PRODUCT USED FOR UNKNOWN INDICATION
     Dosage: UNK
     Route: 061
  61. RULID [Concomitant]
     Active Substance: ROXITHROMYCIN
     Indication: PRODUCT USED FOR UNKNOWN INDICATION
     Dosage: UNK
     Route: 048
  62. TRANSAMIN [Concomitant]
     Active Substance: TRANEXAMIC ACID
     Indication: PRODUCT USED FOR UNKNOWN INDICATION
     Dosage: UNK
     Route: 065
  63. CRAVIT [Concomitant]
     Active Substance: LEVOFLOXACIN
     Indication: PRODUCT USED FOR UNKNOWN INDICATION
     Dosage: UNK
     Route: 048
  64. ROMIPLOSTIM [Suspect]
     Active Substance: ROMIPLOSTIM
     Dosage: 10 MICROGRAM/KILOGRAM, QWK
     Route: 065
     Dates: start: 20120601, end: 20130315
  65. ROMIPLOSTIM [Suspect]
     Active Substance: ROMIPLOSTIM
     Dosage: 9 MICROGRAM/KILOGRAM, QWK
     Route: 065
     Dates: start: 20130913, end: 20130927
  66. ROMIPLOSTIM [Suspect]
     Active Substance: ROMIPLOSTIM
     Dosage: 9 MICROGRAM/KILOGRAM, QWK
     Route: 065
     Dates: start: 20131011, end: 20131025
  67. DECADRON [Concomitant]
     Active Substance: DEXAMETHASONE
     Dosage: 16.5 MILLIGRAM
     Route: 065
     Dates: start: 20120428, end: 20120501
  68. MUCODYNE [Concomitant]
     Active Substance: CARBOCYSTEINE
     Indication: PRODUCT USED FOR UNKNOWN INDICATION
     Dosage: UNK
     Route: 048
  69. GRANISETRON [Concomitant]
     Active Substance: GRANISETRON
     Indication: PROPHYLAXIS
     Dosage: UNK
     Route: 041
  70. SAXIZON [Concomitant]
     Active Substance: HYDROCORTISONE SODIUM SUCCINATE
     Indication: PROPHYLAXIS
     Dosage: UNK
     Route: 065
  71. POLARAMINE [Concomitant]
     Active Substance: DEXCHLORPHENIRAMINE MALEATE
     Indication: PRODUCT USED FOR UNKNOWN INDICATION
     Dosage: UNK
     Route: 065
  72. SIMVASTATIN. [Concomitant]
     Active Substance: SIMVASTATIN
     Indication: PROPHYLAXIS
     Dosage: UNK
     Route: 048
  73. FLUCONAZOLE. [Concomitant]
     Active Substance: FLUCONAZOLE
     Indication: PROPHYLAXIS
     Dosage: UNK
     Route: 048
  74. PASIL [Concomitant]
     Active Substance: PAZUFLOXACIN MESILATE
     Indication: PRODUCT USED FOR UNKNOWN INDICATION
     Dosage: UNK
     Route: 041
  75. HUSTAZOL [Concomitant]
     Indication: PRODUCT USED FOR UNKNOWN INDICATION
     Dosage: UNK
     Route: 048

REACTIONS (16)
  - Upper respiratory tract inflammation [Recovered/Resolved]
  - Sepsis [Recovered/Resolved]
  - Bronchitis [Recovered/Resolved]
  - Epistaxis [Recovered/Resolved]
  - Upper respiratory tract inflammation [Recovered/Resolved]
  - Uveitis [Not Recovered/Not Resolved]
  - Oedema [Recovered/Resolved]
  - Upper respiratory tract inflammation [Recovered/Resolved]
  - Upper respiratory tract inflammation [Recovered/Resolved]
  - Influenza [Recovered/Resolved]
  - Hyperkalaemia [Not Recovered/Not Resolved]
  - Epistaxis [Recovered/Resolved]
  - Allergic transfusion reaction [Recovered/Resolved]
  - Mouth ulceration [Recovered/Resolved]
  - Drug eruption [Not Recovered/Not Resolved]
  - Rash [Recovered/Resolved]

NARRATIVE: CASE EVENT DATE: 20120512
